FAERS Safety Report 7012871-3 (Version None)
Quarter: 2010Q3

REPORT INFORMATION
  Report Type: 
  Country: None (occurrence: None)
  Receive Date: 20100922
  Receipt Date: 20100907
  Transmission Date: 20110219
  Serious: Yes (Other)
  Sender: FDA-Public Use
  Company Number: 2010SP048064

PATIENT
  Age: 19 Year
  Sex: Female
  Weight: 56.6996 kg

DRUGS (1)
  1. IMPLANON [Suspect]
     Indication: CONTRACEPTION
     Dosage: SBDE
     Route: 059
     Dates: start: 20080101

REACTIONS (7)
  - ABDOMINAL PAIN UPPER [None]
  - ANGINA PECTORIS [None]
  - ASTHENIA [None]
  - COLD SWEAT [None]
  - DECREASED APPETITE [None]
  - NAUSEA [None]
  - PYREXIA [None]
